FAERS Safety Report 4319289-2 (Version None)
Quarter: 2004Q1

REPORT INFORMATION
  Report Type: 
  Country: None (occurrence: None)
  Receive Date: 20040318
  Receipt Date: 20040318
  Transmission Date: 20041129
  Serious: Yes (Life-Threatening)
  Sender: FDA-Public Use
  Company Number: None

PATIENT
  Age: 52 Year
  Sex: Male
  Weight: 68.0396 kg

DRUGS (2)
  1. AREDIA [Suspect]
     Indication: MULTIPLE MYELOMA
     Dosage: 1 PER IV
     Route: 042
     Dates: start: 19990108, end: 20030107
  2. ZOMETA [Suspect]
     Indication: MULTIPLE MYELOMA
     Dosage: 1 PER MONTH IV
     Route: 042
     Dates: start: 20030110, end: 20040108

REACTIONS (4)
  - ASEPTIC NECROSIS BONE [None]
  - INFECTION [None]
  - PAIN [None]
  - SWELLING [None]
